FAERS Safety Report 8384371-X (Version None)
Quarter: 2012Q2

REPORT INFORMATION
  Report Type: 
  Country: None (occurrence: None)
  Receive Date: 20120524
  Receipt Date: 20120516
  Transmission Date: 20120825
  Serious: Yes (Hospitalization, Other)
  Sender: FDA-Public Use
  Company Number: KR-ABBOTT-12P-090-0929870-00

PATIENT
  Sex: Male
  Weight: 32 kg

DRUGS (15)
  1. HUMIRA [Suspect]
     Indication: CROHN'S DISEASE
     Dosage: INDUCTION THERAPY
     Route: 058
     Dates: start: 20101221, end: 20101221
  2. BVIOFL [Concomitant]
     Indication: GASTROINTESTINAL DISORDER
     Route: 048
     Dates: start: 20030819
  3. VENOFERRUM [Concomitant]
     Indication: ANAEMIA
     Dates: start: 20070416
  4. PIPERACILLIN AND TAZOBACTAM [Concomitant]
     Indication: PYREXIA
     Route: 042
     Dates: start: 20110323, end: 20110325
  5. HUMIRA [Suspect]
     Route: 058
  6. PHAZYME [Concomitant]
     Indication: DYSPEPSIA
     Route: 048
     Dates: start: 20110204, end: 20110206
  7. ALBUMIN (HUMAN) [Concomitant]
     Indication: BLOOD ALBUMIN ABNORMAL
     Route: 042
  8. PENTASA [Concomitant]
     Indication: CROHN'S DISEASE
     Dosage: 3000MG DAILY
     Route: 048
     Dates: start: 20030715, end: 20120210
  9. CIPROFLOXACIN [Concomitant]
     Indication: INFLAMMATION
     Route: 042
     Dates: start: 20110104, end: 20110108
  10. ACTINAMIDE INJECTION [Concomitant]
     Indication: VITAMIN B12 ABNORMAL
     Route: 030
     Dates: start: 20101225, end: 20110211
  11. QUESTRAN [Concomitant]
     Indication: BLOOD CHOLESTEROL ABNORMAL
     Route: 048
     Dates: start: 20101227, end: 20101231
  12. SINIL [Concomitant]
     Indication: ANAEMIA
     Route: 048
     Dates: start: 20100916
  13. CAL D VITA [Concomitant]
     Indication: MINERAL SUPPLEMENTATION
     Route: 048
     Dates: start: 20100517
  14. VITAMIN B12 [Concomitant]
     Indication: PARAESTHESIA
     Route: 048
     Dates: start: 20101222, end: 20101224
  15. TASNA [Concomitant]
     Indication: ACIDOSIS
     Route: 048
     Dates: start: 20110326

REACTIONS (7)
  - DIARRHOEA [None]
  - ANAEMIA OF CHRONIC DISEASE [None]
  - ANAEMIA [None]
  - VOMITING [None]
  - DEHYDRATION [None]
  - NAUSEA [None]
  - PARAESTHESIA [None]
